FAERS Safety Report 20653384 (Version 1)
Quarter: 2022Q1

REPORT INFORMATION
  Report Type: Spontaneous
  Country: US (occurrence: None)
  Receive Date: 20220330
  Receipt Date: 20220330
  Transmission Date: 20220424
  Serious: No
  Sender: FDA-Public Use
  Company Number: 2022A094720

PATIENT

DRUGS (1)
  1. ANDEXXA [Suspect]
     Active Substance: ANDEXANET ALFA
     Indication: Haemorrhage intracranial
     Dosage: LOW DOSE OF 400 MG FOLLOWED BY AN INFUSION OF ANDEXXA OF 480 MG ADMINISTERED IN A TOTAL OF TWO HO...
     Route: 042

REACTIONS (1)
  - Thrombosis [Unknown]
